FAERS Safety Report 6860776-0 (Version None)
Quarter: 2010Q3

REPORT INFORMATION
  Report Type: 
  Country: None (occurrence: None)
  Receive Date: 20100720
  Receipt Date: 20100715
  Transmission Date: 20110219
  Serious: Yes (Hospitalization)
  Sender: FDA-Public Use
  Company Number: FR-SANOFI-AVENTIS-2010SA041488

PATIENT
  Age: 59 Year
  Sex: Male

DRUGS (20)
  1. LARGACTIL [Suspect]
     Indication: PRODUCT USED FOR UNKNOWN INDICATION
     Route: 042
     Dates: start: 20100603, end: 20100609
  2. KARDEGIC [Suspect]
     Route: 048
     Dates: start: 20100101, end: 20100609
  3. ZOLPIDEM [Suspect]
     Indication: PRODUCT USED FOR UNKNOWN INDICATION
     Route: 048
     Dates: start: 20100605, end: 20100609
  4. ALKERAN [Suspect]
     Route: 042
     Dates: start: 20100601, end: 20100601
  5. ACUPAN [Suspect]
     Indication: PRODUCT USED FOR UNKNOWN INDICATION
     Route: 042
     Dates: start: 20100531, end: 20100609
  6. COVERSYL /FRA/ [Suspect]
     Indication: PRODUCT USED FOR UNKNOWN INDICATION
     Route: 048
     Dates: start: 20100602, end: 20100609
  7. BISOPROLOL [Suspect]
     Indication: PRODUCT USED FOR UNKNOWN INDICATION
     Route: 048
     Dates: start: 20100602, end: 20100609
  8. FUROSEMIDE [Suspect]
     Indication: PRODUCT USED FOR UNKNOWN INDICATION
     Route: 048
     Dates: start: 20100602, end: 20100609
  9. NEULASTA [Suspect]
     Indication: PRODUCT USED FOR UNKNOWN INDICATION
     Route: 058
     Dates: start: 20100607, end: 20100607
  10. CEFTRIAXONE SODIUM [Suspect]
     Indication: PRODUCT USED FOR UNKNOWN INDICATION
     Route: 042
     Dates: start: 20100605, end: 20100609
  11. GENTAMICIN [Suspect]
     Indication: PRODUCT USED FOR UNKNOWN INDICATION
     Route: 042
     Dates: start: 20100605, end: 20100609
  12. VERAPAMIL [Suspect]
     Indication: PRODUCT USED FOR UNKNOWN INDICATION
     Route: 048
     Dates: end: 20100609
  13. PREVISCAN [Suspect]
     Route: 048
     Dates: end: 20100609
  14. DEXAMETHASONE [Concomitant]
     Route: 051
     Dates: start: 20090818, end: 20091103
  15. DEXAMETHASONE [Concomitant]
     Route: 051
     Dates: start: 20100414, end: 20100414
  16. LENALIDOMIDE [Concomitant]
     Route: 048
     Dates: start: 20100101, end: 20100101
  17. LENALIDOMIDE [Concomitant]
     Route: 048
     Dates: start: 20100414, end: 20100414
  18. LENALIDOMIDE [Concomitant]
     Route: 048
     Dates: start: 20100516, end: 20100516
  19. ZOPHREN [Concomitant]
     Indication: PRODUCT USED FOR UNKNOWN INDICATION
     Route: 065
     Dates: start: 20100531, end: 20100607
  20. PRIMPERAN TAB [Concomitant]
     Route: 065
     Dates: start: 20100531, end: 20100606

REACTIONS (2)
  - PANCYTOPENIA [None]
  - RENAL TUBULAR DISORDER [None]
